FAERS Safety Report 8330068-1 (Version None)
Quarter: 2012Q2

REPORT INFORMATION
  Report Type: 
  Country: None (occurrence: None)
  Receive Date: 20120502
  Receipt Date: 20100106
  Transmission Date: 20120825
  Serious: No
  Sender: FDA-Public Use
  Company Number: US-TEVA-2010000065

PATIENT
  Sex: Male
  Weight: 59.474 kg

DRUGS (10)
  1. LAMICTAL [Concomitant]
     Indication: BIPOLAR DISORDER
     Dosage: 150 MILLIGRAM;
     Route: 048
     Dates: start: 20080201
  2. NUVIGIL [Suspect]
     Indication: SEDATION
     Route: 048
     Dates: start: 20091115, end: 20091129
  3. FEXOFENADINE [Concomitant]
     Indication: HYPERSENSITIVITY
     Dosage: 180 MILLIGRAM;
     Route: 048
     Dates: start: 20050101
  4. NASONEX [Concomitant]
     Indication: HYPERSENSITIVITY
     Route: 045
     Dates: start: 20000101
  5. PROVIGIL [Suspect]
     Indication: SEDATION
     Dosage: 100 MILLIGRAM;
     Route: 048
     Dates: start: 20091130
  6. XANAX XR [Concomitant]
     Indication: ANXIETY
     Route: 048
     Dates: start: 20071201
  7. XANAX XR [Concomitant]
     Indication: INSOMNIA
  8. SEROQUEL [Concomitant]
     Indication: INSOMNIA
     Dosage: 50 MILLIGRAM;
     Route: 048
     Dates: start: 20071201
  9. LEXAPRO [Concomitant]
     Indication: ANXIETY
     Dosage: 10 MILLIGRAM;
     Route: 048
     Dates: start: 20080201
  10. SINGULAIR [Concomitant]
     Indication: HYPERSENSITIVITY
     Dosage: 10 MILLIGRAM;
     Route: 048
     Dates: start: 20000101

REACTIONS (3)
  - SKIN HAEMORRHAGE [None]
  - DRY SKIN [None]
  - RASH MACULAR [None]
